FAERS Safety Report 4801304-0 (Version None)
Quarter: 2005Q4

REPORT INFORMATION
  Report Type: 
  Country: None (occurrence: None)
  Receive Date: 20051017
  Receipt Date: 20050614
  Transmission Date: 20060501
  Serious: Yes (Life-Threatening, Hospitalization, Disabling)
  Sender: FDA-Public Use
  Company Number: DE-MERCK-0506DEU00129

PATIENT
  Age: 78 Year
  Sex: Female

DRUGS (26)
  1. VIOXX [Suspect]
     Indication: OSTEOARTHRITIS
     Route: 048
     Dates: start: 20000101, end: 20041001
  2. VIOXX [Suspect]
     Route: 048
     Dates: start: 20020501
  3. VIOXX [Suspect]
     Route: 065
     Dates: start: 20010301, end: 20010101
  4. VIOXX [Suspect]
     Route: 065
     Dates: start: 20021101
  5. VIOXX [Suspect]
     Indication: POLYARTHRITIS
     Route: 048
     Dates: start: 20000101, end: 20041001
  6. VIOXX [Suspect]
     Route: 048
     Dates: start: 20020501
  7. VIOXX [Suspect]
     Route: 065
     Dates: start: 20010301, end: 20010101
  8. VIOXX [Suspect]
     Route: 065
     Dates: start: 20021101
  9. ASPIRIN [Concomitant]
     Route: 065
  10. PHENPROCOUMON [Concomitant]
     Route: 065
  11. CLOPIDOGREL BISULFATE [Concomitant]
     Route: 065
  12. NEBIVOLOL HYDROCHLORIDE [Concomitant]
     Route: 065
  13. RAMIPRIL [Concomitant]
     Route: 065
  14. ACETYLDIGOXIN [Concomitant]
     Route: 065
  15. TORSEMIDE [Concomitant]
     Route: 065
  16. PRAVASTATIN SODIUM [Concomitant]
     Route: 065
  17. AMITRIPTYLINE HYDROCHLORIDE [Concomitant]
     Route: 065
  18. TILIDINE HYDROCHLORIDE [Concomitant]
     Route: 065
  19. FLUPIRTINE MALEATE [Concomitant]
     Route: 065
  20. DICLOFENAC SODIUM [Concomitant]
     Route: 065
  21. PANTOPRAZOLE SODIUM [Concomitant]
     Route: 065
  22. ZOLPIDEM TARTRATE [Concomitant]
     Route: 065
  23. BROMAZEPAM [Concomitant]
     Route: 065
  24. FLUNITRAZEPAM [Concomitant]
     Route: 065
  25. OXAZEPAM [Concomitant]
     Route: 065
  26. LEVOTHYROXINE SODIUM [Concomitant]
     Indication: HYPOTHYROIDISM
     Route: 065
     Dates: end: 20000401

REACTIONS (26)
  - ANGINA PECTORIS [None]
  - AORTIC VALVE INCOMPETENCE [None]
  - CARDIAC FAILURE [None]
  - CHEST DISCOMFORT [None]
  - CHOLESTASIS [None]
  - CORONARY ARTERY DISEASE [None]
  - DIZZINESS [None]
  - DYSPNOEA EXERTIONAL [None]
  - FATIGUE [None]
  - GAIT DISTURBANCE [None]
  - GASTROINTESTINAL INFECTION [None]
  - INTERVERTEBRAL DISC PROTRUSION [None]
  - JOINT SWELLING [None]
  - MITRAL VALVE INCOMPETENCE [None]
  - OEDEMA PERIPHERAL [None]
  - POLYNEUROPATHY [None]
  - PRURITUS GENERALISED [None]
  - RADICULAR SYNDROME [None]
  - ROSACEA [None]
  - SICCA SYNDROME [None]
  - SLEEP DISORDER [None]
  - SOFT TISSUE DISORDER [None]
  - TACHYARRHYTHMIA [None]
  - TARSAL TUNNEL SYNDROME [None]
  - VITAL CAPACITY DECREASED [None]
  - WRONG TECHNIQUE IN DRUG USAGE PROCESS [None]
